FAERS Safety Report 24984565 (Version 1)
Quarter: 2025Q1

REPORT INFORMATION
  Report Type: Spontaneous
  Country: CZ (occurrence: CZ)
  Receive Date: 20250219
  Receipt Date: 20250219
  Transmission Date: 20250409
  Serious: Yes (Hospitalization)
  Sender: DR REDDYS
  Company Number: None

PATIENT
  Sex: Female

DRUGS (9)
  1. PREGABALIN [Suspect]
     Active Substance: PREGABALIN
     Indication: Generalised anxiety disorder
     Dosage: INCREASED
     Route: 065
  2. PREGABALIN [Suspect]
     Active Substance: PREGABALIN
     Indication: Generalised anxiety disorder
     Dosage: 150 MILLIGRAM, BID, 300 MG (150 MG 1-0-1) (FORMULATION: TABLET)
  3. PREGABALIN [Suspect]
     Active Substance: PREGABALIN
     Dosage: REDUCED THE DOSE TO 600 MG WITHIN 14 DAYS.
     Route: 065
  4. PREGABALIN [Suspect]
     Active Substance: PREGABALIN
     Dosage: TBL 5-0-0 (ORIGINALLY STARTED FOR GAD AT 300 MG (150 MG 1-0-1))
     Route: 065
  5. PREGABALIN [Suspect]
     Active Substance: PREGABALIN
     Dosage: 750-1000 MG ONCE DAILY IN THE MORNING FOR ABOUT 3 YEARS
  6. PREGABALIN [Suspect]
     Active Substance: PREGABALIN
     Dosage: 750 MILLIGRAM, QD (ONE DAILY DOSE IN THE MORNING)
  7. OXAZEPAM [Suspect]
     Active Substance: OXAZEPAM
     Indication: Product used for unknown indication
  8. ALCOHOL [Suspect]
     Active Substance: ALCOHOL
     Indication: Product used for unknown indication
  9. CLONAZEPAM [Suspect]
     Active Substance: CLONAZEPAM
     Indication: Withdrawal syndrome

REACTIONS (8)
  - Hyperhidrosis [Unknown]
  - Tremor [Unknown]
  - Conjunctival hyperaemia [Unknown]
  - Tension [Unknown]
  - Anxiety [Unknown]
  - Insomnia [Unknown]
  - Intentional overdose [Unknown]
  - Intentional product misuse [Unknown]
